FAERS Safety Report 8854268 (Version 1)
Quarter: 2012Q4

REPORT INFORMATION
  Report Type: Report from Study
  Country: US (occurrence: US)
  Receive Date: 20121023
  Receipt Date: 20121023
  Transmission Date: 20130627
  Serious: No
  Sender: FDA-Public Use
  Company Number: US-009507513-2007-167374-NL

PATIENT
  Age: 21 Year
  Sex: Female
  Weight: 64.18 kg

DRUGS (2)
  1. IMPLANON [Suspect]
     Indication: CONTRACEPTION
     Dosage: DOSE TEXT: UNKNOWN
     Route: 059
     Dates: start: 20071025, end: 20101215
  2. IMPLANON [Suspect]
     Dosage: UNK
     Dates: start: 20101215, end: 20121016

REACTIONS (2)
  - Abdominal pain [Not Recovered/Not Resolved]
  - Incorrect drug administration duration [Unknown]
